FAERS Safety Report 16590856 (Version 2)
Quarter: 2019Q3

REPORT INFORMATION
  Report Type: Spontaneous
  Country: US (occurrence: US)
  Receive Date: 20190718
  Receipt Date: 20190724
  Transmission Date: 20191004
  Serious: Yes (Other)
  Sender: FDA-Public Use
  Company Number: US-PFIZER INC-2019305007

PATIENT
  Age: 4 Month

DRUGS (4)
  1. BICILLIN C-R 900/300 [Suspect]
     Active Substance: PENICILLIN G BENZATHINE\PENICILLIN G PROCAINE
     Dosage: 0.5 ML, UNK, (0.5 ML OF BICILLIN-CR WAS EJECTED)
     Route: 013
  2. BICILLIN C-R 900/300 [Suspect]
     Active Substance: PENICILLIN G BENZATHINE\PENICILLIN G PROCAINE
     Dosage: 2 ML, UNK, (BICILLIN-CR WAS INJECTED INTO A 3-ML B-D SYRINGE WITH A 21-GAUGE, 2.54-CM NEEDLE)
     Route: 013
  3. BICILLIN C-R 900/300 [Suspect]
     Active Substance: PENICILLIN G BENZATHINE\PENICILLIN G PROCAINE
     Dosage: 0.5 ML, UNK, (0.5 ML WAS EJECTED FROM A 2-ML TUBEX SYRINGE)
     Route: 013
  4. BICILLIN C-R 900/300 [Suspect]
     Active Substance: PENICILLIN G BENZATHINE\PENICILLIN G PROCAINE
     Indication: OTITIS MEDIA
     Dosage: 600000 IU, UNK, (BICILLIN-CR IN THE LEFT ANTERIOR THIGH)
     Route: 030

REACTIONS (1)
  - Embolia cutis medicamentosa [Unknown]
